FAERS Safety Report 17146343 (Version 1)
Quarter: 2019Q4

REPORT INFORMATION
  Report Type: Spontaneous
  Country: PL (occurrence: PL)
  Receive Date: 20191212
  Receipt Date: 20191212
  Transmission Date: 20200122
  Serious: Yes (Hospitalization)
  Sender: FDA-Public Use
  Company Number: PL-TEVA-2019-PL-1149725

PATIENT
  Age: 26 Year
  Sex: Male
  Weight: 112 kg

DRUGS (3)
  1. PARACETAMOL [Suspect]
     Active Substance: ACETAMINOPHEN
     Indication: PHARYNGOTONSILLITIS
     Dosage: USAGE OF DRUG - AS NEEDED, 500 MG
     Route: 048
     Dates: start: 20160822, end: 20160904
  2. IBUPROFEN. [Suspect]
     Active Substance: IBUPROFEN
     Indication: PHARYNGOTONSILLITIS
     Dosage: USAGE OF DRUG - AS NEEDED, 200 MG
     Route: 048
     Dates: start: 20160822, end: 20160904
  3. KLABION [Suspect]
     Active Substance: CLARITHROMYCIN
     Indication: PHARYNGOTONSILLITIS
     Dosage: 1 GRAM
     Route: 048
     Dates: start: 20160904, end: 20160905

REACTIONS (1)
  - Rash macular [Recovering/Resolving]

NARRATIVE: CASE EVENT DATE: 20160904
